FAERS Safety Report 6181503-9 (Version None)
Quarter: 2009Q2

REPORT INFORMATION
  Report Type: 
  Country: None (occurrence: None)
  Receive Date: 20090506
  Receipt Date: 20090428
  Transmission Date: 20091009
  Serious: Yes (Disabling, Other)
  Sender: FDA-Public Use
  Company Number: IE-ABBOTT-09P-229-0560395-00

PATIENT
  Age: 6 Year
  Sex: Female

DRUGS (4)
  1. EPILIM SYRUP [Suspect]
     Indication: CONVULSION PROPHYLAXIS
     Route: 048
     Dates: start: 20040504, end: 20081231
  2. EPILIM SYRUP [Suspect]
     Route: 048
     Dates: start: 20081231
  3. VALPROATE SODIUM [Suspect]
     Indication: CONVULSION PROPHYLAXIS
     Route: 048
     Dates: start: 20081231
  4. VALPROATE SODIUM [Suspect]
     Route: 048
     Dates: end: 20090301

REACTIONS (4)
  - CONVULSION [None]
  - DRUG LEVEL FLUCTUATING [None]
  - INTENTIONAL DRUG MISUSE [None]
  - OFF LABEL USE [None]
